FAERS Safety Report 19615780 (Version 1)
Quarter: 2021Q3

REPORT INFORMATION
  Report Type: Spontaneous
  Country: US (occurrence: US)
  Receive Date: 20210727
  Receipt Date: 20210727
  Transmission Date: 20211014
  Serious: Yes (Other)
  Sender: FDA-Public Use
  Company Number: US-PFIZER INC-2021849273

PATIENT
  Age: 71 Year
  Sex: Female

DRUGS (1)
  1. DEPO?ESTRADIOL [Suspect]
     Active Substance: ESTRADIOL CYPIONATE
     Indication: HYSTERECTOMY
     Dosage: UNK

REACTIONS (3)
  - Arthralgia [Unknown]
  - Upper limb fracture [Unknown]
  - Fall [Unknown]
